FAERS Safety Report 6137115-6 (Version None)
Quarter: 2009Q1

REPORT INFORMATION
  Report Type: 
  Country: None (occurrence: None)
  Receive Date: 20090330
  Receipt Date: 20090320
  Transmission Date: 20090719
  Serious: Yes (Hospitalization)
  Sender: FDA-Public Use
  Company Number: FR-BRISTOL-MYERS SQUIBB COMPANY-14564017

PATIENT
  Age: 82 Year
  Sex: Female

DRUGS (18)
  1. GLUCOPHAGE [Suspect]
     Route: 048
     Dates: start: 20090203
  2. KEPPRA [Suspect]
     Route: 048
     Dates: start: 20090127, end: 20090210
  3. INIPOMP [Suspect]
     Route: 048
     Dates: start: 20090123, end: 20090210
  4. FLUDEX [Suspect]
     Dosage: L.P 1.5 MG
     Route: 048
     Dates: start: 20090126, end: 20090205
  5. DIAMICRON [Suspect]
     Dosage: 30 MG
     Route: 048
     Dates: start: 20090127, end: 20090205
  6. NICARDIPINE HCL [Suspect]
     Dosage: 1 CAPSULE, 100 MG
     Route: 048
     Dates: start: 20090127
  7. AUGMENTIN '125' [Suspect]
     Route: 048
     Dates: start: 20090123, end: 20090202
  8. URBANYL [Suspect]
     Dates: start: 20090127
  9. PERINDOPRIL ERBUMINE [Suspect]
     Dates: start: 20090116
  10. ALLOPURINOL [Concomitant]
  11. LESCOL [Concomitant]
  12. LEVOTHYROXINE SODIUM [Concomitant]
     Indication: HYPOTHYROIDISM
     Dosage: 1 DF = 100 UNITS NOT SPECIFIED
  13. SINTROM [Concomitant]
     Indication: PROPHYLAXIS
  14. COAPROVEL [Concomitant]
     Indication: HYPERTENSION
  15. HYPERIUM [Concomitant]
     Indication: HYPERTENSION
  16. ZANIDIP [Concomitant]
     Indication: HYPERTENSION
  17. INSULATARD [Concomitant]
     Indication: DIABETES MELLITUS
     Dosage: 1 DOSAGE FORM = 100UI/ML
  18. DIASTABOL [Concomitant]
     Indication: DIABETES MELLITUS

REACTIONS (1)
  - THROMBOCYTOPENIA [None]
